FAERS Safety Report 5863444-7 (Version None)
Quarter: 2008Q3

REPORT INFORMATION
  Report Type: 
  Country: None (occurrence: None)
  Receive Date: 20080828
  Receipt Date: 20080820
  Transmission Date: 20090109
  Serious: Yes (Hospitalization, Other)
  Sender: FDA-Public Use
  Company Number: GB-PFIZER INC-2008070569

PATIENT
  Age: 14 Year
  Sex: Male
  Weight: 34 kg

DRUGS (10)
  1. HYDROCORTISONE SODIUM SUCCINATE [Suspect]
  2. AZATHIOPRINE [Suspect]
     Indication: CROHN'S DISEASE
     Route: 048
  3. INFLIXIMAB [Suspect]
     Indication: CROHN'S DISEASE
     Route: 042
  4. HYDROCORTISONE [Concomitant]
  5. MEBEVERINE [Concomitant]
  6. OMEPRAZOLE [Concomitant]
  7. GENTAMYCIN SULFATE [Concomitant]
  8. POTASSIUM CHLORIDE [Concomitant]
  9. PREDNISOLONE [Concomitant]
  10. PYRIDOXINE HYDROCHLORIDE [Concomitant]

REACTIONS (2)
  - CROHN'S DISEASE [None]
  - REVERSIBLE POSTERIOR LEUKOENCEPHALOPATHY SYNDROME [None]
